FAERS Safety Report 6958151-3 (Version None)
Quarter: 2010Q3

REPORT INFORMATION
  Report Type: 
  Country: None (occurrence: None)
  Receive Date: 20100831
  Receipt Date: 20100819
  Transmission Date: 20110219
  Serious: Yes (Other)
  Sender: FDA-Public Use
  Company Number: AR-PFIZER INC-2010093423

PATIENT
  Age: 75 Year
  Sex: Female
  Weight: 55 kg

DRUGS (2)
  1. ZOLOFT [Suspect]
     Indication: DEPRESSION
     Dosage: 50 MG, 1X/DAY
     Route: 048
     Dates: start: 20100623
  2. RIVOTRIL [Concomitant]
     Dosage: UNK
     Route: 048

REACTIONS (3)
  - COGNITIVE DISORDER [None]
  - CONFUSIONAL STATE [None]
  - TREMOR [None]
